FAERS Safety Report 8340188-3 (Version None)
Quarter: 2012Q2

REPORT INFORMATION
  Report Type: 
  Country: None (occurrence: None)
  Receive Date: 20120507
  Receipt Date: 20120426
  Transmission Date: 20120825
  Serious: Yes (Other)
  Sender: FDA-Public Use
  Company Number: FR-BRISTOL-MYERS SQUIBB COMPANY-16559809

PATIENT
  Age: 13 Year
  Sex: Male
  Weight: 37 kg

DRUGS (3)
  1. REVATIO [Suspect]
     Indication: PULMONARY ARTERIAL HYPERTENSION
     Route: 048
     Dates: start: 20120319
  2. COUMADIN [Suspect]
     Indication: PULMONARY MICROEMBOLI
     Route: 048
     Dates: start: 20120321
  3. LOVENOX [Suspect]

REACTIONS (5)
  - VOMITING [None]
  - MUSCULAR WEAKNESS [None]
  - DIARRHOEA [None]
  - ERYTHEMA [None]
  - PETECHIAE [None]
